FAERS Safety Report 24008797 (Version 1)
Quarter: 2024Q2

REPORT INFORMATION
  Report Type: Spontaneous
  Country: US (occurrence: US)
  Receive Date: 20240625
  Receipt Date: 20240625
  Transmission Date: 20240716
  Serious: No
  Sender: FDA-Public Use
  Company Number: US-BANNER LIFE SCIENCES, LLC-2023BAN000132

PATIENT

DRUGS (1)
  1. BAFIERTAM [Suspect]
     Active Substance: MONOMETHYL FUMARATE
     Indication: Product used for unknown indication
     Dosage: TWICE A DAY (BID) FOR THE FIRST 7 DAYS AND THEN 190MG BID
     Route: 048
     Dates: start: 20230508

REACTIONS (7)
  - Joint swelling [Unknown]
  - Blister [Unknown]
  - Dysuria [Unknown]
  - Rash [Unknown]
  - Hot flush [Unknown]
  - Flushing [Unknown]
  - Vulvovaginal burning sensation [Unknown]

NARRATIVE: CASE EVENT DATE: 20230520
